FAERS Safety Report 6035383-2 (Version None)
Quarter: 2009Q1

REPORT INFORMATION
  Report Type: 
  Country: None (occurrence: None)
  Receive Date: 20090113
  Receipt Date: 20090106
  Transmission Date: 20090719
  Serious: Yes (Death, Hospitalization)
  Sender: FDA-Public Use
  Company Number: US-BAYER-200838722NA

PATIENT
  Sex: Male

DRUGS (1)
  1. BETASERON [Suspect]
     Indication: DRUG USE FOR UNKNOWN INDICATION
     Dates: end: 20080725

REACTIONS (2)
  - CEREBROVASCULAR ACCIDENT [None]
  - COMA [None]
